FAERS Safety Report 16286324 (Version 1)
Quarter: 2019Q2

REPORT INFORMATION
  Report Type: Report from Study
  Country: DO (occurrence: DO)
  Receive Date: 20190508
  Receipt Date: 20190508
  Transmission Date: 20190711
  Serious: Yes (Other)
  Sender: FDA-Public Use
  Company Number: DO-JNJFOC-20190501207

PATIENT

DRUGS (5)
  1. GOLIMUMAB [Suspect]
     Active Substance: GOLIMUMAB
     Indication: SPONDYLITIS
     Route: 058
  2. SECUKINUMAB. [Suspect]
     Active Substance: SECUKINUMAB
     Indication: SPONDYLITIS
     Route: 065
  3. ETANERCEPT [Suspect]
     Active Substance: ETANERCEPT
     Indication: SPONDYLITIS
     Route: 065
  4. CERTOLIZUMAB PEGOL [Suspect]
     Active Substance: CERTOLIZUMAB PEGOL
     Indication: SPONDYLITIS
     Route: 065
  5. ADALIMUMAB [Suspect]
     Active Substance: ADALIMUMAB
     Indication: SPONDYLITIS
     Route: 065

REACTIONS (6)
  - Neutropenia [Unknown]
  - Pulmonary tuberculosis [Unknown]
  - Lymphopenia [Unknown]
  - Dyslipidaemia [Unknown]
  - Transaminases increased [Unknown]
  - Respiratory tract infection [Unknown]
